FAERS Safety Report 25170441 (Version 1)
Quarter: 2025Q2

REPORT INFORMATION
  Report Type: Spontaneous
  Country: CN (occurrence: CN)
  Receive Date: 20250408
  Receipt Date: 20250408
  Transmission Date: 20250716
  Serious: Yes (Hospitalization, Other)
  Sender: NOVO NORDISK
  Company Number: CN-NOVOPROD-1400633

PATIENT
  Age: 66 Year
  Sex: Female
  Weight: 56.2 kg

DRUGS (4)
  1. INSULIN ASPART [Suspect]
     Active Substance: INSULIN ASPART
     Indication: Product used for unknown indication
  2. INSULIN ASPART [Suspect]
     Active Substance: INSULIN ASPART
     Dates: start: 201603
  3. LEVEMIR [Suspect]
     Active Substance: INSULIN DETEMIR
     Indication: Product used for unknown indication
  4. LEVEMIR [Suspect]
     Active Substance: INSULIN DETEMIR
     Dates: start: 201603

REACTIONS (2)
  - Bacteraemia [Unknown]
  - Urinary tract infection [Unknown]

NARRATIVE: CASE EVENT DATE: 20240601
